FAERS Safety Report 5567445-8 (Version None)
Quarter: 2007Q4

REPORT INFORMATION
  Report Type: 
  Country: None (occurrence: None)
  Receive Date: 20071214
  Receipt Date: 20071129
  Transmission Date: 20080405
  Serious: Yes (Hospitalization)
  Sender: FDA-Public Use
  Company Number: 2007S1011403

PATIENT
  Age: 7 Year
  Sex: Male

DRUGS (3)
  1. IBUPROFEN (IBUPROFEN) [Suspect]
     Indication: JUVENILE ARTHRITIS
     Dosage: 10 MG/KG; Q8H
  2. INDOMETHACIN [Suspect]
     Indication: JUVENILE ARTHRITIS
     Dosage: 25 MG; Q12H;
  3. DICLOFENAC (DICLOFENAC) [Suspect]
     Indication: POSTOPERATIVE CARE
     Dosage: RECTAL
     Route: 054

REACTIONS (4)
  - BLOOD CREATININE INCREASED [None]
  - BLOOD UREA INCREASED [None]
  - DEHYDRATION [None]
  - VOMITING [None]
